FAERS Safety Report 14260241 (Version 3)
Quarter: 2017Q4

REPORT INFORMATION
  Report Type: Spontaneous
  Country: JP (occurrence: JP)
  Receive Date: 20171207
  Receipt Date: 20171229
  Transmission Date: 20180321
  Serious: Yes (Hospitalization, Other)
  Sender: FDA-Public Use
  Company Number: JP-TEVA-810734ACC

PATIENT
  Age: 76 Year
  Sex: Male

DRUGS (9)
  1. BENDAMUSTINE HYDROCHLORIDE. [Suspect]
     Active Substance: BENDAMUSTINE HYDROCHLORIDE
     Indication: B-CELL LYMPHOMA
     Route: 042
     Dates: start: 20170815, end: 20170816
  2. RITUXIMAB. [Suspect]
     Active Substance: RITUXIMAB
     Indication: B-CELL LYMPHOMA
     Dosage: ONCE DAILY
     Route: 041
     Dates: start: 20170814
  3. BENDAMUSTINE HYDROCHLORIDE. [Suspect]
     Active Substance: BENDAMUSTINE HYDROCHLORIDE
     Route: 042
     Dates: start: 20171012, end: 20171012
  4. PALONOSETRON HYDROCHLORIDE. [Concomitant]
     Active Substance: PALONOSETRON HYDROCHLORIDE
     Indication: VOMITING
     Route: 042
     Dates: start: 20170912, end: 20170912
  5. FEBUXOSTAT. [Concomitant]
     Active Substance: FEBUXOSTAT
     Indication: PROPHYLAXIS
     Route: 048
     Dates: start: 20170813
  6. RITUXIMAB. [Suspect]
     Active Substance: RITUXIMAB
     Dosage: ONCE DAILY
     Route: 041
     Dates: start: 20170911
  7. BENDAMUSTINE HYDROCHLORIDE. [Suspect]
     Active Substance: BENDAMUSTINE HYDROCHLORIDE
     Route: 042
     Dates: start: 20170912, end: 20170912
  8. RITUXIMAB. [Suspect]
     Active Substance: RITUXIMAB
     Dosage: ONCE DAILY
     Route: 041
     Dates: start: 20171011
  9. SULFAMETHOXAZOLE W/TRIMETHOPRIM [Concomitant]
     Active Substance: SULFAMETHOXAZOLE\TRIMETHOPRIM
     Indication: PROPHYLAXIS
     Route: 048
     Dates: start: 20170817

REACTIONS (7)
  - Bacteraemia [Unknown]
  - C-reactive protein increased [Unknown]
  - Tremor [Unknown]
  - Pyrexia [Recovered/Resolved]
  - Pyrexia [Recovered/Resolved]
  - Infection [Unknown]
  - Procalcitonin increased [Unknown]

NARRATIVE: CASE EVENT DATE: 20170912
